FAERS Safety Report 4687514-4 (Version None)
Quarter: 2005Q2

REPORT INFORMATION
  Report Type: 
  Country: None (occurrence: None)
  Receive Date: 20050610
  Receipt Date: 20040831
  Transmission Date: 20051028
  Serious: Yes (Other)
  Sender: FDA-Public Use
  Company Number: 200511463JP

PATIENT
  Age: 77 Year
  Sex: Female

DRUGS (3)
  1. ARAVA [Suspect]
     Indication: JUVENILE ARTHRITIS
     Dates: start: 20040209
  2. CORTICOSTEROIDS [Concomitant]
     Indication: JUVENILE ARTHRITIS
  3. UNKNOWN DRUG [Concomitant]
     Indication: JUVENILE ARTHRITIS

REACTIONS (1)
  - DELUSION [None]
